FAERS Safety Report 4583372-7 (Version None)
Quarter: 2005Q1

REPORT INFORMATION
  Report Type: 
  Country: None (occurrence: None)
  Receive Date: 20050125
  Receipt Date: 20040813
  Transmission Date: 20050727
  Serious: No
  Sender: FDA-Public Use
  Company Number: USA031050026

PATIENT
  Age: 76 Year
  Sex: Male
  Weight: 59 kg

DRUGS (9)
  1. FORTEO [Suspect]
     Indication: OSTEOPOROSIS
     Dosage: 20 UG/IE DAY
     Dates: start: 20031009, end: 20040727
  2. NAPROSYN [Concomitant]
  3. FELODIPINE [Concomitant]
  4. CALCIUM GLUCONATE [Concomitant]
  5. CITRUCEL (METHYLCELLULOSE) [Concomitant]
  6. QUININE SULFATE [Concomitant]
  7. HYDROXYCHLOROQUINE SULFATE [Concomitant]
  8. ACETAMINOPHEN W/HYDROCODONE [Concomitant]
  9. TRAMADOL HCL [Concomitant]

REACTIONS (13)
  - ACCIDENTAL NEEDLE STICK [None]
  - ARTHRALGIA [None]
  - ASTHENIA [None]
  - BALANCE DISORDER [None]
  - DIZZINESS [None]
  - DYSPHONIA [None]
  - HYPERSENSITIVITY [None]
  - INJECTION SITE HAEMORRHAGE [None]
  - LABORATORY TEST ABNORMAL [None]
  - MUSCLE SPASMS [None]
  - PAIN IN EXTREMITY [None]
  - SLUGGISHNESS [None]
  - SOMNOLENCE [None]
